FAERS Safety Report 9258363 (Version 1)
Quarter: 2013Q1

REPORT INFORMATION
  Report Type: Spontaneous
  Country: US (occurrence: None)
  Receive Date: 20121212
  Receipt Date: 20121212
  Transmission Date: 20140127
  Serious: No
  Sender: FDA-Public Use
  Company Number: 1210USA010742

PATIENT
  Age: 21 Year
  Sex: Female

DRUGS (6)
  1. VICTRELIS [Suspect]
     Indication: HEPATITIS C
     Route: 048
  2. RIBAVIRIN [Suspect]
     Route: 048
  3. PEG-INTRON [Suspect]
  4. TYLENOL (ACETAMINOPHEN) [Concomitant]
  5. PAXIL (PAROXETINE HYDROCHLORIDE) [Concomitant]
  6. PROMETHAZINE (PROMETHAZINE) [Concomitant]

REACTIONS (1)
  - Drug ineffective [None]
